FAERS Safety Report 4992265-2 (Version None)
Quarter: 2006Q2

REPORT INFORMATION
  Report Type: 
  Country: None (occurrence: None)
  Receive Date: 20060502
  Receipt Date: 20060417
  Transmission Date: 20061013
  Serious: Yes (Hospitalization)
  Sender: FDA-Public Use
  Company Number: 2006RL000141

PATIENT
  Age: 85 Year
  Sex: Female
  Weight: 89.3586 kg

DRUGS (14)
  1. RYTHMOL [Suspect]
     Indication: ATRIAL FIBRILLATION
     Dosage: 225 MG; BID; PO
     Route: 048
     Dates: start: 20060404
  2. WARFARIN SODIUM [Suspect]
     Dosage: 5 MG; QD; PO
     Route: 048
     Dates: start: 20051001
  3. COUMADIN [Suspect]
     Dates: start: 20060301
  4. BACTRIM [Suspect]
  5. ALDACTONE [Suspect]
     Indication: HYPERTENSION
     Dosage: 150 MG; BID; PO
     Route: 048
     Dates: start: 19660103
  6. QUININE [Concomitant]
  7. THYROID TAB [Concomitant]
  8. ASPIRIN [Concomitant]
  9. PREMARIN [Concomitant]
  10. LASIX [Concomitant]
  11. PREDNISONE TAB [Concomitant]
  12. GLIPIZIDE [Concomitant]
  13. ANCEF [Concomitant]
  14. CLINDAMYCIN [Concomitant]

REACTIONS (14)
  - BLOOD CREATININE INCREASED [None]
  - BLOOD ELECTROLYTES ABNORMAL [None]
  - BLOOD GLUCOSE DECREASED [None]
  - BLOOD POTASSIUM INCREASED [None]
  - BLOOD SODIUM DECREASED [None]
  - BLOOD UREA INCREASED [None]
  - CELLULITIS [None]
  - ECCHYMOSIS [None]
  - ERYTHEMA [None]
  - ESCHERICHIA INFECTION [None]
  - INTERNATIONAL NORMALISED RATIO INCREASED [None]
  - PROTHROMBIN TIME PROLONGED [None]
  - SKIN ULCER [None]
  - WOUND INFECTION BACTERIAL [None]
